FAERS Safety Report 17157560 (Version 1)
Quarter: 2019Q4

REPORT INFORMATION
  Report Type: Spontaneous
  Country: US (occurrence: US)
  Receive Date: 20191213
  Receipt Date: 20191213
  Transmission Date: 20200122
  Serious: Yes (Other)
  Sender: FDA-Public Use
  Company Number: None

PATIENT
  Age: 61 Year
  Sex: Male

DRUGS (4)
  1. ATIVAN .5 MG TAB [Concomitant]
     Dates: start: 20080408
  2. ASPRIN [Concomitant]
     Active Substance: ASPIRIN
     Dates: start: 20160705
  3. ENBREL [Suspect]
     Active Substance: ETANERCEPT
     Indication: ANKYLOSING SPONDYLITIS
     Dosage: ?          OTHER FREQUENCY:ONCE A WEEK;?
     Route: 058
     Dates: start: 20150822
  4. LEXAPRO TAB 20 MG [Concomitant]
     Dates: start: 20080408

REACTIONS (2)
  - Hip arthroplasty [None]
  - Therapy cessation [None]

NARRATIVE: CASE EVENT DATE: 20191212
